FAERS Safety Report 9777743 (Version 5)
Quarter: 2014Q3

REPORT INFORMATION
  Report Type: Spontaneous
  Country: CH (occurrence: CH)
  Receive Date: 20131223
  Receipt Date: 20140703
  Transmission Date: 20150326
  Serious: Yes (Other)
  Sender: FDA-Public Use
  Company Number: CH-BIOGENIDEC-2013BI078027

PATIENT
  Age: 33 Year
  Sex: Male

DRUGS (3)
  1. MEFLOQUIN [Concomitant]
     Route: 048
     Dates: start: 20130801, end: 20131101
  2. TYSABRI [Suspect]
     Active Substance: NATALIZUMAB
     Indication: MULTIPLE SCLEROSIS
     Route: 042
     Dates: start: 201012, end: 20130801
  3. REMERON [Concomitant]
     Active Substance: MIRTAZAPINE
     Dates: start: 201308

REACTIONS (2)
  - Progressive multifocal leukoencephalopathy [Not Recovered/Not Resolved]
  - Immune reconstitution inflammatory syndrome [Unknown]

NARRATIVE: CASE EVENT DATE: 201308
